FAERS Safety Report 4408533-9 (Version None)
Quarter: 2004Q3

REPORT INFORMATION
  Report Type: 
  Country: None (occurrence: None)
  Receive Date: 20040722
  Receipt Date: 20040713
  Transmission Date: 20050211
  Serious: Yes (Other)
  Sender: FDA-Public Use
  Company Number: 200410549BCA

PATIENT
  Age: 83 Year
  Sex: Female

DRUGS (5)
  1. CIPROFLOXACIN [Suspect]
     Dosage: 1000 MG, QD, ORAL
     Route: 048
  2. HEPARIN [Suspect]
     Dosage: 5000 U, BID, SUBCUTANEOUS
     Route: 058
  3. CHLORTHALIDONE [Concomitant]
  4. HYDROCHLOROTHIAZIDE [Concomitant]
  5. LASIX [Concomitant]

REACTIONS (1)
  - HAEMOLYTIC URAEMIC SYNDROME [None]
